FAERS Safety Report 11865562 (Version 2)
Quarter: 2016Q1

REPORT INFORMATION
  Report Type: Spontaneous
  Country: US (occurrence: US)
  Receive Date: 20151223
  Receipt Date: 20160118
  Transmission Date: 20160526
  Serious: No
  Sender: FDA-Public Use
  Company Number: US-ROXANE LABORATORIES, INC.-2015-RO-02133RO

PATIENT
  Age: 28 Year
  Sex: Male

DRUGS (6)
  1. MORPHINE SULFATE TABLETS [Suspect]
     Active Substance: MORPHINE SULFATE
     Indication: ARTHRALGIA
     Route: 048
     Dates: start: 20151213
  2. MORPHINE SULFATE TABLETS [Suspect]
     Active Substance: MORPHINE SULFATE
     Indication: BACK PAIN
  3. PROPRANOLOL [Concomitant]
     Active Substance: PROPRANOLOL\PROPRANOLOL HYDROCHLORIDE
     Indication: HYPERTENSION
     Route: 065
  4. MORPHINE SULFATE TABLETS [Suspect]
     Active Substance: MORPHINE SULFATE
     Indication: MIGRAINE
     Dosage: 90 MG
     Route: 048
     Dates: start: 201512
  5. PROMETHAZINE [Concomitant]
     Active Substance: PROMETHAZINE\PROMETHAZINE HYDROCHLORIDE
     Indication: NAUSEA
     Route: 065
  6. MORPHINE SULFATE TABLETS [Suspect]
     Active Substance: MORPHINE SULFATE
     Indication: NECK PAIN

REACTIONS (3)
  - Drug ineffective [Not Recovered/Not Resolved]
  - Diarrhoea [Unknown]
  - Product quality issue [Unknown]

NARRATIVE: CASE EVENT DATE: 20151213
